FAERS Safety Report 17640896 (Version 1)
Quarter: 2020Q2

REPORT INFORMATION
  Report Type: Spontaneous
  Country: CL (occurrence: EC)
  Receive Date: 20200407
  Receipt Date: 20200407
  Transmission Date: 20200713
  Serious: Yes (Hospitalization, Other)
  Sender: FDA-Public Use
  Company Number: EC-ASTELLAS-2020US012176

PATIENT
  Age: 77 Year
  Sex: Male

DRUGS (1)
  1. ENZALUTAMIDE [Suspect]
     Active Substance: ENZALUTAMIDE
     Indication: PROSTATE CANCER
     Route: 048
     Dates: start: 20190916

REACTIONS (2)
  - Pneumonia [Recovered/Resolved]
  - Ureteric obstruction [Recovered/Resolved]

NARRATIVE: CASE EVENT DATE: 20200302
